FAERS Safety Report 12635255 (Version 3)
Quarter: 2016Q3

REPORT INFORMATION
  Report Type: Spontaneous
  Country: JP (occurrence: JP)
  Receive Date: 20160808
  Receipt Date: 20160908
  Transmission Date: 20161109
  Serious: Yes (Death, Hospitalization)
  Sender: FDA-Public Use
  Company Number: JP-CELGENEUS-JPN-2016077155

PATIENT
  Age: 69 Year
  Sex: Female

DRUGS (1)
  1. REVLIMID [Suspect]
     Active Substance: LENALIDOMIDE
     Indication: PRIMARY AMYLOIDOSIS
     Route: 048

REACTIONS (6)
  - General physical health deterioration [Unknown]
  - Cardiac amyloidosis [Unknown]
  - Malaise [Unknown]
  - Gastrointestinal disorder [Unknown]
  - Gastrointestinal amyloidosis [Unknown]
  - Amyloidosis [Fatal]
